FAERS Safety Report 5743089-X (Version None)
Quarter: 2008Q2

REPORT INFORMATION
  Report Type: 
  Country: None (occurrence: None)
  Receive Date: 20080519
  Receipt Date: 20080509
  Transmission Date: 20081010
  Serious: Yes (Hospitalization, Other)
  Sender: FDA-Public Use
  Company Number: US-AMGEN-QUU276830

PATIENT
  Sex: Male

DRUGS (14)
  1. ENBREL [Suspect]
     Indication: PSORIATIC ARTHROPATHY
     Route: 058
     Dates: start: 20040503
  2. ACETAMNINOPHEN W/DIPHENHYDRAMINE [Concomitant]
     Route: 048
  3. TYLENOL PM [Concomitant]
     Route: 048
  4. EXCEDRIN (MIGRAINE) [Concomitant]
     Route: 048
  5. ASPIRIN [Concomitant]
     Route: 048
  6. ALEVE [Concomitant]
     Route: 048
  7. HYDROCODONE BITARTRATE + ACETAMINOPHEN [Concomitant]
     Route: 048
  8. ASCORBIC ACID [Concomitant]
     Route: 048
  9. VITAMIN E [Concomitant]
     Route: 048
  10. GARLIC [Concomitant]
     Route: 048
  11. CENTRUM [Concomitant]
     Route: 048
  12. PROTOPIC [Concomitant]
  13. LISINOPRIL [Concomitant]
     Route: 048
  14. SSKI [Concomitant]
     Route: 048

REACTIONS (7)
  - LIVEDO RETICULARIS [None]
  - LYMPHADENOPATHY [None]
  - PENILE ABSCESS [None]
  - SKIN ULCER [None]
  - URETHRAL FISTULA [None]
  - URETHRAL STENOSIS [None]
  - VENOUS STASIS [None]
